FAERS Safety Report 13448989 (Version 1)
Quarter: 2017Q2

REPORT INFORMATION
  Report Type: Spontaneous
  Country: CH (occurrence: CH)
  Receive Date: 20170417
  Receipt Date: 20170417
  Transmission Date: 20170830
  Serious: Yes (Hospitalization)
  Sender: FDA-Public Use
  Company Number: CH-TEVA-758424ISR

PATIENT
  Age: 75 Year
  Sex: Male
  Weight: 83.3 kg

DRUGS (12)
  1. TRAMADOL MEPHA TROPFEN [Suspect]
     Active Substance: TRAMADOL
     Route: 048
     Dates: start: 20170203, end: 20170204
  2. ASPIRIN CARDIO 100 FILMTABLETTEN [Concomitant]
     Active Substance: ASPIRIN
     Route: 048
  3. NOVONORM 2 MG TABLETTEN [Concomitant]
     Route: 048
  4. ATORVASTATIN PFIZER [Concomitant]
     Active Substance: ATORVASTATIN
     Route: 048
  5. CONCOR 5 (MITE) LACKTABLETTEN [Concomitant]
     Route: 048
  6. DALMADORM BRUCHTABLETTEN [Concomitant]
     Active Substance: FLURAZEPAM\FLURAZEPAM HYDROCHLORIDE
     Route: 048
  7. TRIATEC 5 MG TABLETTEN [Concomitant]
     Active Substance: RAMIPRIL
     Route: 048
  8. LANTUS [Concomitant]
     Active Substance: INSULIN GLARGINE
     Route: 058
  9. SINTROM 1 MITIS TABLETTEN [Concomitant]
     Route: 048
  10. ADALAT CC [Concomitant]
     Active Substance: NIFEDIPINE
     Route: 048
  11. PANTOZOL [Concomitant]
     Active Substance: PANTOPRAZOLE SODIUM
     Route: 048
  12. QUETIAPINE SANDOZ [Concomitant]
     Active Substance: QUETIAPINE
     Route: 048

REACTIONS (4)
  - Confusional state [Recovered/Resolved]
  - Psychomotor hyperactivity [Recovered/Resolved]
  - Altered state of consciousness [Recovered/Resolved]
  - Somnolence [Recovered/Resolved]

NARRATIVE: CASE EVENT DATE: 20170204
